FAERS Safety Report 6589971-5 (Version None)
Quarter: 2010Q1

REPORT INFORMATION
  Report Type: 
  Country: None (occurrence: None)
  Receive Date: 20100219
  Receipt Date: 20100205
  Transmission Date: 20100710
  Serious: Yes (Other)
  Sender: FDA-Public Use
  Company Number: PHHY2010JP04705

PATIENT
  Age: 40 Year
  Sex: Female

DRUGS (6)
  1. TEGRETOL [Suspect]
     Indication: EPILEPSY
     Dosage: 500 MG, UNK
     Route: 048
  2. HYSERENIN [Suspect]
     Indication: EPILEPSY
     Dosage: 850 MG, DAILY
     Route: 048
  3. VITAMIN D [Suspect]
     Dosage: 120 IU
     Dates: end: 20060601
  4. VITAMIN D [Suspect]
     Dosage: 96 IU
     Dates: end: 20070801
  5. VITAMIN D [Suspect]
     Dosage: 120 IU
     Dates: end: 20081001
  6. PHENOBARBITAL TAB [Concomitant]
     Indication: EPILEPSY
     Dosage: 70 MG, UNK
     Route: 048

REACTIONS (7)
  - BLOOD 1,25-DIHYDROXYCHOLECALCIFEROL DECREASED [None]
  - BLOOD PARATHYROID HORMONE INCREASED [None]
  - BONE DISORDER [None]
  - COPPER DEFICIENCY [None]
  - FANCONI SYNDROME [None]
  - OSTEOMALACIA [None]
  - PAIN [None]
